FAERS Safety Report 19419152 (Version 1)
Quarter: 2021Q2

REPORT INFORMATION
  Report Type: Spontaneous
  Country: US (occurrence: US)
  Receive Date: 20210615
  Receipt Date: 20210615
  Transmission Date: 20210717
  Serious: No
  Sender: FDA-Public Use
  Company Number: US-SA-2021SA194918

PATIENT
  Age: 10 Year
  Sex: Female

DRUGS (1)
  1. DUPIXENT [Suspect]
     Active Substance: DUPILUMAB
     Indication: HYPERSENSITIVITY
     Dosage: 300MG, EVERY 16 DAYS

REACTIONS (5)
  - Device use issue [Unknown]
  - Product use issue [Unknown]
  - Product storage error [Unknown]
  - Product dose omission issue [Unknown]
  - Product use in unapproved indication [Unknown]
